FAERS Safety Report 5629898-6 (Version None)
Quarter: 2008Q1

REPORT INFORMATION
  Report Type: 
  Country: None (occurrence: None)
  Receive Date: 20080218
  Receipt Date: 20080208
  Transmission Date: 20080703
  Serious: Yes (Death, Hospitalization, Other)
  Sender: FDA-Public Use
  Company Number: US-ELI_LILLY_AND_COMPANY-US200712001613

PATIENT
  Sex: Female

DRUGS (18)
  1. ALIMTA [Suspect]
     Indication: NON-SMALL CELL LUNG CANCER
     Dosage: EVERY 21 DAYS X 1 DOSE
     Dates: start: 20071107, end: 20071101
  2. CITRACAL [Concomitant]
  3. AVANDIA [Concomitant]
  4. ASPIRIN [Concomitant]
  5. PLAVIX [Concomitant]
  6. METFORMIN HCL [Concomitant]
  7. REGLAN [Concomitant]
  8. LACTULOSE [Concomitant]
  9. ARIMIDEX [Concomitant]
  10. LASIX [Concomitant]
  11. PREVACID [Concomitant]
  12. WELLBUTRIN [Concomitant]
  13. LIPITOR [Concomitant]
  14. GLYBURIDE [Concomitant]
  15. CENTRUM [Concomitant]
  16. ALLEGRA [Concomitant]
  17. PHENERGAN HCL [Concomitant]
  18. FOLIC ACID [Concomitant]

REACTIONS (4)
  - FEBRILE NEUTROPENIA [None]
  - HAEMORRHAGE [None]
  - PANCYTOPENIA [None]
  - SEPSIS [None]
